FAERS Safety Report 7200007-5 (Version None)
Quarter: 2010Q4

REPORT INFORMATION
  Report Type: 
  Country: None (occurrence: None)
  Receive Date: 20101228
  Receipt Date: 20101213
  Transmission Date: 20110411
  Serious: Yes (Hospitalization)
  Sender: FDA-Public Use
  Company Number: GXKR2010GB14115

PATIENT
  Age: 74 Year
  Sex: Female
  Weight: 83.8 kg

DRUGS (7)
  1. OXALIPLATIN [Suspect]
     Indication: COLORECTAL CANCER
     Dosage: 250 MG
     Route: 042
     Dates: start: 20100708
  2. OXALIPLATIN [Suspect]
     Dosage: 100 G/M2
     Route: 042
  3. DEXAMETHASONE [Concomitant]
     Indication: PROPHYLAXIS
     Dosage: 8 MG
     Route: 042
     Dates: start: 20100708
  4. DEXAMETHASONE [Concomitant]
     Indication: MALAISE
  5. LANSOPRAZOLE [Concomitant]
     Dosage: 30 MG
     Route: 048
  6. ONDANSETRON [Concomitant]
     Indication: PROPHYLAXIS
     Dosage: 8 MG
     Route: 042
     Dates: start: 20100708
  7. ONDANSETRON [Concomitant]
     Indication: MALAISE

REACTIONS (4)
  - DYSPHONIA [None]
  - DYSPNOEA [None]
  - PARAESTHESIA [None]
  - VISION BLURRED [None]
